FAERS Safety Report 12321460 (Version 1)
Quarter: 2016Q2

REPORT INFORMATION
  Report Type: Spontaneous
  Country: US (occurrence: US)
  Receive Date: 20160502
  Receipt Date: 20160502
  Transmission Date: 20160815
  Serious: No
  Sender: FDA-Public Use
  Company Number: US-BAYER-2016-078630

PATIENT
  Age: 29 Year
  Sex: Male

DRUGS (1)
  1. GADAVIST [Suspect]
     Active Substance: GADOBUTROL
     Dosage: UNK
     Dates: start: 20160420, end: 20160420

REACTIONS (3)
  - Ocular hyperaemia [None]
  - Lacrimation increased [None]
  - Throat irritation [None]

NARRATIVE: CASE EVENT DATE: 20160420
